FAERS Safety Report 4363576-9 (Version None)
Quarter: 2004Q2

REPORT INFORMATION
  Report Type: 
  Country: None (occurrence: None)
  Receive Date: 20040524
  Receipt Date: 20040524
  Transmission Date: 20050107
  Serious: Yes (Hospitalization)
  Sender: FDA-Public Use
  Company Number: None

PATIENT
  Age: 44 Year
  Sex: Female
  Weight: 74.8 kg

DRUGS (10)
  1. DEPAKOTE ER [Suspect]
     Indication: BIPOLAR DISORDER
     Dosage: SEE IMAGE
     Dates: start: 20040402, end: 20040412
  2. DEPAKOTE ER [Suspect]
     Indication: MANIA
     Dosage: SEE IMAGE
     Dates: start: 20040402, end: 20040412
  3. DEPAKOTE ER [Suspect]
     Indication: BIPOLAR DISORDER
     Dosage: SEE IMAGE
     Dates: start: 20040412, end: 20040507
  4. DEPAKOTE ER [Suspect]
     Indication: MANIA
     Dosage: SEE IMAGE
     Dates: start: 20040412, end: 20040507
  5. DEPAKOTE ER [Suspect]
     Indication: BIPOLAR DISORDER
     Dosage: SEE IMAGE
     Dates: start: 20040507, end: 20040514
  6. DEPAKOTE ER [Suspect]
     Indication: MANIA
     Dosage: SEE IMAGE
     Dates: start: 20040507, end: 20040514
  7. DEPAKOTE ER [Suspect]
     Indication: BIPOLAR DISORDER
     Dosage: SEE IMAGE
     Dates: start: 20040514, end: 20040520
  8. DEPAKOTE ER [Suspect]
     Indication: MANIA
     Dosage: SEE IMAGE
     Dates: start: 20040514, end: 20040520
  9. ABILIFY [Concomitant]
  10. TOPAMAX [Concomitant]

REACTIONS (3)
  - CONFUSIONAL STATE [None]
  - HEPATITIS [None]
  - JAUNDICE [None]
